FAERS Safety Report 6966496-6 (Version None)
Quarter: 2010Q3

REPORT INFORMATION
  Report Type: 
  Country: None (occurrence: None)
  Receive Date: 20100906
  Receipt Date: 20100826
  Transmission Date: 20110219
  Serious: Yes (Hospitalization)
  Sender: FDA-Public Use
  Company Number: US-BIOGENIDEC-2007BI009072

PATIENT
  Age: 55 Year
  Sex: Female
  Weight: 56 kg

DRUGS (5)
  1. AVONEX [Suspect]
     Indication: MULTIPLE SCLEROSIS
     Route: 030
     Dates: start: 19970812, end: 19990224
  2. AVONEX [Suspect]
     Route: 030
     Dates: start: 20000810, end: 20010214
  3. AVONEX [Suspect]
     Route: 030
     Dates: start: 20030101
  4. AVONEX [Suspect]
     Route: 030
     Dates: start: 20090829
  5. AMPYRA [Concomitant]
     Dates: start: 20100809

REACTIONS (8)
  - DYSPNOEA [None]
  - FALL [None]
  - HEMIPARESIS [None]
  - INFLUENZA LIKE ILLNESS [None]
  - ROTATOR CUFF SYNDROME [None]
  - SCAR [None]
  - ULNAR NERVE INJURY [None]
  - URTICARIA [None]
